FAERS Safety Report 12872056 (Version 1)
Quarter: 2016Q4

REPORT INFORMATION
  Report Type: Spontaneous
  Country: JP (occurrence: JP)
  Receive Date: 20161021
  Receipt Date: 20161021
  Transmission Date: 20170207
  Serious: Yes (Life-Threatening, Hospitalization, Other)
  Sender: FDA-Public Use
  Company Number: JP-ASTRAZENECA-2016SF10604

PATIENT
  Age: 33 Year
  Sex: Male
  Weight: 50 kg

DRUGS (5)
  1. DRUG FOR PSYCHO NEUROSIS [Concomitant]
  2. SEROQUEL [Suspect]
     Active Substance: QUETIAPINE FUMARATE
     Route: 048
     Dates: start: 20161011, end: 20161011
  3. MYSLEE [Suspect]
     Active Substance: ZOLPIDEM TARTRATE
     Route: 048
     Dates: start: 20161011, end: 20161011
  4. DRUG FOR BLOOD [Concomitant]
  5. BODY FLUID AGENTS [Concomitant]

REACTIONS (7)
  - Suicide attempt [Unknown]
  - Hepatic function abnormal [Unknown]
  - Blood creatine phosphokinase increased [Unknown]
  - Renal impairment [Unknown]
  - Intentional overdose [Unknown]
  - Decubitus ulcer [Unknown]
  - Stupor [Unknown]

NARRATIVE: CASE EVENT DATE: 20161011
